FAERS Safety Report 13017336 (Version 1)
Quarter: 2016Q4

REPORT INFORMATION
  Report Type: Spontaneous
  Country: None (occurrence: US)
  Receive Date: 20161209
  Receipt Date: 20161209
  Transmission Date: 20170207
  Serious: Yes (Death)
  Sender: FDA-Public Use
  Company Number: None

PATIENT
  Age: 93 Year
  Sex: Female

DRUGS (1)
  1. PROCRIT [Suspect]
     Active Substance: ERYTHROPOIETIN
     Indication: DEFICIENCY ANAEMIA
     Dosage: 10,000 UNITS 3TIMES A WEEK SQ
     Route: 058
     Dates: start: 20160318

REACTIONS (2)
  - Blood pressure decreased [None]
  - Haemorrhage [None]

NARRATIVE: CASE EVENT DATE: 20161123
